FAERS Safety Report 9176109 (Version 1)
Quarter: 2012Q4

REPORT INFORMATION
  Report Type: 
  Country: US (occurrence: US)
  Receive Date: 20120918
  Receipt Date: 20120918
  Transmission Date: 20130627
  Serious: Yes (Hospitalization, Other)
  Sender: FDA-Public Use
  Company Number: US-RB-032921-11

PATIENT
  Age: 20 None
  Sex: Female

DRUGS (6)
  1. SUBOXONE FILM [Suspect]
     Indication: DRUG DEPENDENCE
     Dosage: Suboxone film
     Route: 060
     Dates: start: 201104, end: 201110
  2. SUBOXONE FILM [Suspect]
     Dosage: Suboxone film
     Route: 060
     Dates: start: 201205
  3. SUBUTEX [Suspect]
     Indication: DRUG DEPENDENCE
     Route: 060
     Dates: start: 201110, end: 201205
  4. CANNABIS SATIVA SUBSP. INDICA TOP [Suspect]
     Indication: PRODUCT USED FOR UNKNOWN INDICATION
     Dosage: Dosing details unknown
     Route: 065
     Dates: start: 201111, end: 201111
  5. CIGARETTES [Suspect]
     Indication: NICOTINE DEPENDENCE
     Dosage: 10 cigarettes daily
     Route: 065
  6. PRENATAL VITAMINS [Concomitant]
     Indication: PREGNANCY
     Dosage: Dosing details unknown
     Route: 065
     Dates: start: 201110, end: 20120428

REACTIONS (5)
  - Substance abuse [Recovered/Resolved]
  - Wrong technique in drug usage process [Not Recovered/Not Resolved]
  - Exposure during pregnancy [Recovered/Resolved]
  - Premature labour [Recovered/Resolved]
  - Premature delivery [Recovered/Resolved]
